FAERS Safety Report 9735251 (Version 3)
Quarter: 2013Q4

REPORT INFORMATION
  Report Type: Report from Study
  Country: BE (occurrence: BE)
  Receive Date: 20131206
  Receipt Date: 20131213
  Transmission Date: 20140711
  Serious: Yes (Other)
  Sender: FDA-Public Use
  Company Number: BE-BAYER-2013-146319

PATIENT
  Age: 46 Year
  Sex: Female

DRUGS (2)
  1. BETAFERON [Suspect]
     Indication: SECONDARY PROGRESSIVE MULTIPLE SCLEROSIS
     Dosage: UNK
     Dates: start: 20131126
  2. GABAPENTIN [Concomitant]
     Indication: NEUROPATHY PERIPHERAL

REACTIONS (7)
  - Blindness [Recovered/Resolved]
  - Abnormal sensation in eye [Recovered/Resolved]
  - Influenza like illness [None]
  - Headache [Recovered/Resolved]
  - Feeling abnormal [Recovering/Resolving]
  - Blindness [Recovered/Resolved]
  - Abnormal sensation in eye [Recovered/Resolved]
